FAERS Safety Report 9586368 (Version 1)
Quarter: 2013Q4

REPORT INFORMATION
  Report Type: Spontaneous
  Country: US (occurrence: US)
  Receive Date: 20131003
  Receipt Date: 20131003
  Transmission Date: 20140711
  Serious: No
  Sender: FDA-Public Use
  Company Number: US-009507513-1310USA000148

PATIENT
  Age: 27 Year
  Sex: Female

DRUGS (1)
  1. NUVARING [Suspect]
     Indication: OVARIAN CYST
     Dosage: 3 WEEKS AND 1 WEEK OUT
     Route: 067
     Dates: start: 20130920, end: 20130925

REACTIONS (1)
  - Muscle spasms [Not Recovered/Not Resolved]
